FAERS Safety Report 17674325 (Version 1)
Quarter: 2020Q2

REPORT INFORMATION
  Report Type: Spontaneous
  Country: US (occurrence: US)
  Receive Date: 20200416
  Receipt Date: 20200416
  Transmission Date: 20200714
  Serious: No
  Sender: FDA-Public Use
  Company Number: US-GW PHARMA-202004USGW01411

PATIENT

DRUGS (2)
  1. EPIDIOLEX [Suspect]
     Active Substance: CANNABIDIOL
     Indication: LENNOX-GASTAUT SYNDROME
     Dosage: 300 MILLIGRAM, BID
     Route: 048
     Dates: start: 20190321
  2. EPIDIOLEX [Suspect]
     Active Substance: CANNABIDIOL
     Indication: CROHN^S DISEASE

REACTIONS (2)
  - Product use in unapproved indication [Not Recovered/Not Resolved]
  - Genital swelling [Unknown]

NARRATIVE: CASE EVENT DATE: 20190321
